FAERS Safety Report 22216609 (Version 2)
Quarter: 2023Q2

REPORT INFORMATION
  Report Type: Spontaneous
  Country: None (occurrence: NL)
  Receive Date: 20230417
  Receipt Date: 20230417
  Transmission Date: 20230721
  Serious: Yes (Death)
  Sender: FDA-Public Use
  Company Number: US-Provepharm-2140441

PATIENT
  Age: 23 Year
  Sex: Male

DRUGS (1)
  1. PROVAYBLUE [Suspect]
     Active Substance: METHYLENE BLUE

REACTIONS (1)
  - Haemodynamic instability [None]
